FAERS Safety Report 5495941-0 (Version None)
Quarter: 2007Q4

REPORT INFORMATION
  Report Type: 
  Country: None (occurrence: None)
  Receive Date: 20071025
  Receipt Date: 20061229
  Transmission Date: 20080405
  Serious: No
  Sender: FDA-Public Use
  Company Number: A0632858A

PATIENT
  Age: 83 Year
  Sex: Male

DRUGS (6)
  1. ADVAIR DISKUS 100/50 [Suspect]
     Dosage: 1PUFF TWICE PER DAY
     Route: 055
  2. SYNTHROID [Concomitant]
  3. ACTOS [Concomitant]
  4. VYTORIN [Concomitant]
  5. DILTIAZEM [Concomitant]
  6. ACCUPRIL [Concomitant]

REACTIONS (2)
  - PRURITUS [None]
  - URTICARIA [None]
